FAERS Safety Report 25846799 (Version 2)
Quarter: 2025Q4

REPORT INFORMATION
  Report Type: Spontaneous
  Country: US (occurrence: US)
  Receive Date: 20250925
  Receipt Date: 20251027
  Transmission Date: 20260118
  Serious: Yes (Hospitalization)
  Sender: BRISTOL-MYERS SQUIBB COMPANY
  Company Number: US-BRISTOL-MYERS SQUIBB COMPANY-2025-131657

PATIENT
  Age: 58 Year
  Sex: Male

DRUGS (1)
  1. ORENCIA [Suspect]
     Active Substance: ABATACEPT
     Indication: Rheumatoid arthritis
     Route: 058
     Dates: start: 202507

REACTIONS (4)
  - Streptococcal infection [Unknown]
  - Staphylococcal infection [Unknown]
  - Cellulitis [Recovered/Resolved]
  - Stasis dermatitis [Unknown]

NARRATIVE: CASE EVENT DATE: 20250101
